FAERS Safety Report 14560595 (Version 2)
Quarter: 2018Q3

REPORT INFORMATION
  Report Type: Report from Study
  Country: None (occurrence: CO)
  Receive Date: 20180222
  Receipt Date: 20180915
  Transmission Date: 20181010
  Serious: Yes (Hospitalization)
  Sender: FDA-Public Use
  Company Number: CO-ABBVIE-18K-036-2238316-00

PATIENT
  Age: 62 Year
  Sex: Male
  Weight: 58 kg

DRUGS (1)
  1. HUMIRA [Suspect]
     Active Substance: ADALIMUMAB
     Indication: RHEUMATOID ARTHRITIS
     Route: 058
     Dates: start: 20100504, end: 20180103

REACTIONS (5)
  - Knee arthroplasty [Recovering/Resolving]
  - Hypersensitivity [Recovering/Resolving]
  - Knee arthroplasty [Recovering/Resolving]
  - Osteoarthritis [Not Recovered/Not Resolved]
  - Inflammation [Recovering/Resolving]

NARRATIVE: CASE EVENT DATE: 2017
